FAERS Safety Report 5979732-X (Version None)
Quarter: 2008Q4

REPORT INFORMATION
  Report Type: 
  Country: None (occurrence: None)
  Receive Date: 20081204
  Receipt Date: 20080218
  Transmission Date: 20090506
  Serious: No
  Sender: FDA-Public Use
  Company Number: US-AMGEN-KDL266041

PATIENT
  Sex: Female

DRUGS (4)
  1. ENBREL [Suspect]
     Indication: RHEUMATOID ARTHRITIS
     Route: 058
     Dates: start: 20000801
  2. ENBREL [Suspect]
     Indication: SCLERODERMA
  3. METHOTREXATE [Concomitant]
     Route: 048
     Dates: start: 20000101
  4. HYDROXYCHLOROQUINE SULFATE [Concomitant]
     Route: 048
     Dates: start: 20000101

REACTIONS (1)
  - PAIN IN JAW [None]
